FAERS Safety Report 14698663 (Version 1)
Quarter: 2018Q1

REPORT INFORMATION
  Report Type: Report from Study
  Country: JP (occurrence: JP)
  Receive Date: 20180330
  Receipt Date: 20180330
  Transmission Date: 20180509
  Serious: Yes (Hospitalization)
  Sender: FDA-Public Use
  Company Number: JP-ASTELLAS-2010JP005401

PATIENT
  Age: 33 Year
  Sex: Female
  Weight: 40 kg

DRUGS (34)
  1. TACROLIMUS. [Suspect]
     Active Substance: TACROLIMUS
     Indication: LUPUS NEPHRITIS
     Route: 048
     Dates: start: 20071217, end: 20090701
  2. ASTOMIN [Concomitant]
     Active Substance: DIMEMORFAN
     Indication: NASOPHARYNGITIS
     Route: 048
     Dates: start: 20080221, end: 20080226
  3. RINDERON                           /00008501/ [Suspect]
     Active Substance: BETAMETHASONE
     Route: 048
     Dates: start: 20090702, end: 20090909
  4. RINDERON                           /00008501/ [Suspect]
     Active Substance: BETAMETHASONE
     Route: 048
     Dates: start: 20091022, end: 20091209
  5. MEIACT [Concomitant]
     Active Substance: CEFDITOREN PIVOXIL
     Indication: PRODUCT USED FOR UNKNOWN INDICATION
     Route: 048
     Dates: start: 20071217, end: 20071222
  6. PURSENNID                          /00142207/ [Concomitant]
     Active Substance: SENNA LEAF
     Indication: CONSTIPATION
     Route: 048
     Dates: start: 20081117, end: 20090518
  7. RINDERON                           /00008501/ [Suspect]
     Active Substance: BETAMETHASONE
     Dosage: 0.5 MG, ONCE DAILY
     Route: 048
     Dates: start: 20080926, end: 20080928
  8. RINDERON                           /00008501/ [Suspect]
     Active Substance: BETAMETHASONE
     Route: 048
     Dates: start: 20081222, end: 20081228
  9. RINDERON                           /00008501/ [Suspect]
     Active Substance: BETAMETHASONE
     Route: 048
     Dates: start: 20091210, end: 20100106
  10. GASTER [Concomitant]
     Active Substance: FAMOTIDINE
     Indication: PROPHYLAXIS
     Route: 048
  11. AZUNOL [Concomitant]
     Active Substance: SODIUM GUALENATE
     Indication: SYSTEMIC LUPUS ERYTHEMATOSUS
     Dosage: UNK UNK, UNKNOWN FREQ.
     Route: 061
     Dates: start: 20080626
  12. ZITHROMAC [Concomitant]
     Active Substance: AZITHROMYCIN DIHYDRATE
     Indication: BRONCHITIS
     Route: 065
     Dates: start: 20081117, end: 20081119
  13. RINDERON                           /00008501/ [Suspect]
     Active Substance: BETAMETHASONE
     Route: 048
     Dates: start: 20080901, end: 20080925
  14. RINDERON                           /00008501/ [Suspect]
     Active Substance: BETAMETHASONE
     Route: 048
     Dates: start: 20090601, end: 20090701
  15. RINDERON                           /00008501/ [Suspect]
     Active Substance: BETAMETHASONE
     Route: 048
     Dates: start: 20100107
  16. CYTOTEC [Concomitant]
     Active Substance: MISOPROSTOL
     Indication: PRODUCT USED FOR UNKNOWN INDICATION
     Dosage: 200 MCG, ONCE DAILY
     Route: 048
     Dates: end: 20080221
  17. FUROZIN [Concomitant]
     Active Substance: CARPRONIUM CHLORIDE
     Indication: SYSTEMIC LUPUS ERYTHEMATOSUS
     Route: 061
     Dates: start: 20071217, end: 20080403
  18. TACROLIMUS. [Suspect]
     Active Substance: TACROLIMUS
     Route: 048
     Dates: start: 20090702, end: 20110314
  19. PREDNISOLONE. [Suspect]
     Active Substance: PREDNISOLONE
     Route: 048
     Dates: start: 20080222, end: 20080403
  20. PREDNISOLONE. [Suspect]
     Active Substance: PREDNISOLONE
     Route: 048
     Dates: start: 20091002, end: 20091021
  21. RINDERON                           /00008501/ [Suspect]
     Active Substance: BETAMETHASONE
     Route: 048
     Dates: start: 20080929, end: 20081221
  22. RINDERON                           /00008501/ [Suspect]
     Active Substance: BETAMETHASONE
     Route: 048
     Dates: start: 20090910, end: 20091001
  23. CONSTAN [Concomitant]
     Active Substance: ALPRAZOLAM
     Indication: PRODUCT USED FOR UNKNOWN INDICATION
     Route: 048
     Dates: end: 20080901
  24. LOXONIN [Concomitant]
     Active Substance: LOXOPROFEN SODIUM
     Indication: PRODUCT USED FOR UNKNOWN INDICATION
     Route: 048
     Dates: end: 20080221
  25. ANTEBATE [Concomitant]
     Active Substance: BETAMETHASONE DIPROPIONATE
     Indication: SYSTEMIC LUPUS ERYTHEMATOSUS
     Route: 061
     Dates: end: 20080515
  26. DASEN [Concomitant]
     Active Substance: SERRAPEPTASE
     Indication: PRODUCT USED FOR UNKNOWN INDICATION
     Route: 048
     Dates: start: 20071217, end: 20071222
  27. CELESTAMINE [Concomitant]
     Active Substance: BETAMETHASONE\DEXCHLORPHENIRAMINE MALEATE
     Indication: NASOPHARYNGITIS
     Dosage: UNK UNK, UNKNOWN FREQ.
     Route: 065
     Dates: start: 20080403
  28. PREDNISOLONE. [Suspect]
     Active Substance: PREDNISOLONE
     Route: 048
     Dates: start: 20080404, end: 20080515
  29. RINDERON                           /00008501/ [Suspect]
     Active Substance: BETAMETHASONE
     Indication: LUPUS NEPHRITIS
     Route: 048
     Dates: start: 20080516, end: 20080831
  30. RINDERON                           /00008501/ [Suspect]
     Active Substance: BETAMETHASONE
     Route: 048
     Dates: start: 20090518, end: 20090531
  31. PREDNISOLONE. [Suspect]
     Active Substance: PREDNISOLONE
     Indication: LUPUS NEPHRITIS
     Route: 048
     Dates: end: 20080221
  32. RINDERON                           /00008501/ [Suspect]
     Active Substance: BETAMETHASONE
     Route: 048
     Dates: start: 20081229, end: 20090201
  33. RINDERON                           /00008501/ [Suspect]
     Active Substance: BETAMETHASONE
     Route: 048
     Dates: start: 20090202, end: 20090517
  34. FLOMOX [Concomitant]
     Active Substance: CEFCAPENE PIVOXIL HYDROCHLORIDE HYDRATE
     Indication: NASOPHARYNGITIS
     Route: 048
     Dates: start: 20080221, end: 20080226

REACTIONS (4)
  - Lupus nephritis [Recovering/Resolving]
  - Constipation [Recovered/Resolved]
  - Bronchitis [Recovered/Resolved]
  - Nasopharyngitis [Recovering/Resolving]

NARRATIVE: CASE EVENT DATE: 20080221
